FAERS Safety Report 6306848-0 (Version None)
Quarter: 2009Q3

REPORT INFORMATION
  Report Type: 
  Country: None (occurrence: None)
  Receive Date: 20090812
  Receipt Date: 20090803
  Transmission Date: 20100115
  Serious: Yes (Death)
  Sender: FDA-Public Use
  Company Number: BO-PFIZER INC-2009250110

PATIENT
  Age: 79 Year

DRUGS (1)
  1. CELECOXIB [Suspect]
     Indication: PAIN
     Route: 048
     Dates: start: 20090417

REACTIONS (1)
  - DEATH [None]
